FAERS Safety Report 15716076 (Version 1)
Quarter: 2018Q4

REPORT INFORMATION
  Report Type: Spontaneous
  Country: US (occurrence: US)
  Receive Date: 20181213
  Receipt Date: 20181213
  Transmission Date: 20190205
  Serious: No
  Sender: FDA-Public Use
  Company Number: US-DRREDDYS-USA/USA/18/0096934

PATIENT
  Age: 25 Year
  Sex: Male

DRUGS (3)
  1. OMEPRAZOLE. [Suspect]
     Active Substance: OMEPRAZOLE
     Indication: OESOPHAGITIS
     Route: 065
  2. PROCAINE [Concomitant]
     Active Substance: PROCAINE
     Dosage: INTRAVENOUSLY AS AN IV PUSH OF 1 TO 3 MIN
     Route: 040
  3. PROCAINE [Concomitant]
     Active Substance: PROCAINE
     Indication: PRODUCT USED FOR UNKNOWN INDICATION
     Dosage: 0.5 TO 1 CC OF PRESERVATIVE-FREE 1 PERCENT PROCAINE
     Route: 065

REACTIONS (1)
  - Constipation [Not Recovered/Not Resolved]
